FAERS Safety Report 9097070 (Version 1)
Quarter: 2013Q1

REPORT INFORMATION
  Report Type: Spontaneous
  Country: DK (occurrence: None)
  Receive Date: 20130125
  Receipt Date: 20130125
  Transmission Date: 20140127
  Serious: Yes (Other)
  Sender: FDA-Public Use
  Company Number: 2013MA000637

PATIENT
  Age: 49 Year
  Sex: Female

DRUGS (1)
  1. DOXYCYCLINE HYCLATE DELAYED-RELEASE TABLETS 100MG (BASE) (AELLC) (DOXYCYCLINE) [Suspect]

REACTIONS (3)
  - Polycythaemia [None]
  - Fatigue [None]
  - Malaise [None]
